FAERS Safety Report 18617412 (Version 1)
Quarter: 2020Q4

REPORT INFORMATION
  Report Type: Spontaneous
  Country: US (occurrence: US)
  Receive Date: 20201214
  Receipt Date: 20201214
  Transmission Date: 20210114
  Serious: No
  Sender: FDA-Public Use
  Company Number: None

PATIENT
  Sex: Male
  Weight: 74.9 kg

DRUGS (15)
  1. PREDNISONE. [Concomitant]
     Active Substance: PREDNISONE
  2. PRANDIN [Concomitant]
     Active Substance: REPAGLINIDE
  3. GABAPENTIN. [Concomitant]
     Active Substance: GABAPENTIN
  4. CARVEDILOL. [Concomitant]
     Active Substance: CARVEDILOL
  5. ABIRATERONE ACETATE. [Suspect]
     Active Substance: ABIRATERONE ACETATE
     Indication: PROSTATE CANCER
     Route: 048
     Dates: start: 20200923, end: 20201208
  6. MODAFINIL. [Concomitant]
     Active Substance: MODAFINIL
  7. OMEPRAZOLE. [Concomitant]
     Active Substance: OMEPRAZOLE
  8. METFORMIN [Concomitant]
     Active Substance: METFORMIN HYDROCHLORIDE
  9. THERALOGIX PROSTATE 2.4 [Concomitant]
  10. ELIGARD [Concomitant]
     Active Substance: LEUPROLIDE ACETATE
  11. ATORVASTATIN [Concomitant]
     Active Substance: ATORVASTATIN
  12. MULTIVITAMIN [Concomitant]
     Active Substance: VITAMINS
  13. IMODIUM [Concomitant]
     Active Substance: LOPERAMIDE HYDROCHLORIDE
  14. METAMUCIL [Concomitant]
     Active Substance: PLANTAGO SEED
  15. IRON [Concomitant]
     Active Substance: IRON

REACTIONS (1)
  - Hyponatraemia [None]
